FAERS Safety Report 8500982-2 (Version None)
Quarter: 2012Q2

REPORT INFORMATION
  Report Type: 
  Country: None (occurrence: None)
  Receive Date: 20120405
  Receipt Date: 20100315
  Transmission Date: 20120825
  Serious: Yes (Disabling)
  Sender: FDA-Public Use
  Company Number: PHEH2010US02165

PATIENT
  Age: 66 Year
  Sex: Male
  Weight: 83.4 kg

DRUGS (4)
  1. SPIRIVA [Concomitant]
  2. VITAMIN B12 [Concomitant]
  3. RECLAST [Suspect]
     Indication: OSTEOPOROSIS
     Dosage: 5 MG, INFUSION
     Dates: start: 20100115, end: 20100115
  4. DOXAZOSIN MESYLATE [Concomitant]

REACTIONS (9)
  - TENDERNESS [None]
  - GAIT DISTURBANCE [None]
  - BLOOD CREATININE DECREASED [None]
  - HYPOKINESIA [None]
  - VITAMIN D DECREASED [None]
  - NAUSEA [None]
  - BLOOD CALCIUM DECREASED [None]
  - ARTHRALGIA [None]
  - BLOOD ALBUMIN DECREASED [None]
